FAERS Safety Report 5913080-9 (Version None)
Quarter: 2008Q4

REPORT INFORMATION
  Report Type: 
  Country: None (occurrence: None)
  Receive Date: 20081008
  Receipt Date: 20081008
  Transmission Date: 20090506
  Serious: No
  Sender: FDA-Public Use
  Company Number: None

PATIENT
  Sex: Male

DRUGS (2)
  1. RELAFEN [Suspect]
     Indication: ARTHRITIS
     Dosage: 500MG BID PO
     Route: 048
     Dates: start: 20030814, end: 20051011
  2. NAPROXEN [Suspect]
     Indication: ARTHRITIS
     Dosage: 500MG BID PO
     Route: 048
     Dates: start: 20030814, end: 20051011

REACTIONS (5)
  - ARTHRALGIA [None]
  - CONDITION AGGRAVATED [None]
  - DRUG INEFFECTIVE [None]
  - GASTRIC DISORDER [None]
  - THERAPEUTIC RESPONSE UNEXPECTED WITH DRUG SUBSTITUTION [None]
